FAERS Safety Report 16984945 (Version 1)
Quarter: 2019Q4

REPORT INFORMATION
  Report Type: Spontaneous
  Country: CN (occurrence: CN)
  Receive Date: 20191101
  Receipt Date: 20191101
  Transmission Date: 20200122
  Serious: Yes (Other)
  Sender: FDA-Public Use
  Company Number: CN-009507513-1910CHN015272

PATIENT
  Sex: Male
  Weight: 40 kg

DRUGS (2)
  1. TIENAM [Suspect]
     Active Substance: CILASTATIN SODIUM\IMIPENEM
     Indication: MALIGNANT NEOPLASM OF UNKNOWN PRIMARY SITE
     Dosage: 0.5 GRAM, TID
     Route: 041
     Dates: start: 20191022, end: 20191022
  2. VANCOMYCIN [Suspect]
     Active Substance: VANCOMYCIN
     Indication: MALIGNANT NEOPLASM OF UNKNOWN PRIMARY SITE
     Dosage: 1 GRAM, BID
     Route: 041
     Dates: start: 20191022, end: 20191023

REACTIONS (2)
  - Epilepsy [Recovering/Resolving]
  - Neurotoxicity [Unknown]

NARRATIVE: CASE EVENT DATE: 201910
